FAERS Safety Report 4931847-0 (Version None)
Quarter: 2006Q1

REPORT INFORMATION
  Report Type: 
  Country: None (occurrence: None)
  Receive Date: 20060303
  Receipt Date: 20060223
  Transmission Date: 20060701
  Serious: Yes (Hospitalization, Other)
  Sender: FDA-Public Use
  Company Number: FR-ABBOTT-06P-056-0325911-00

PATIENT
  Age: 17 Year
  Sex: Female

DRUGS (1)
  1. DEPAKINE CHRONO SUSPENSION [Suspect]
     Indication: EPILEPSY
     Route: 048

REACTIONS (4)
  - HYPERAMMONAEMIA [None]
  - LETHARGY [None]
  - METABOLIC ENCEPHALOPATHY [None]
  - STATUS EPILEPTICUS [None]
